FAERS Safety Report 5115561-7 (Version None)
Quarter: 2006Q3

REPORT INFORMATION
  Report Type: 
  Country: None (occurrence: None)
  Receive Date: 20060925
  Receipt Date: 20060919
  Transmission Date: 20061208
  Serious: Yes (Death, Hospitalization)
  Sender: FDA-Public Use
  Company Number: 163-20785-06040360

PATIENT
  Age: 46 Year
  Sex: Female

DRUGS (10)
  1. THALOMID [Suspect]
     Indication: MULTIPLE MYELOMA
     Dosage: 200 MG, 1 IN 1 D, ORAL
     Route: 048
     Dates: start: 20050627, end: 20060302
  2. TEMAZEPAM [Concomitant]
  3. METHADONE HCL [Concomitant]
  4. KLONOPIN [Concomitant]
  5. MAGNESIUM OXIDE (MAGNESIUM OXIDE) [Concomitant]
  6. EFFEXOR [Concomitant]
  7. KLOR-CON [Concomitant]
  8. LOTREL [Concomitant]
  9. TRAZODONE HCL [Concomitant]
  10. ZOMETA [Concomitant]

REACTIONS (5)
  - BRAIN OEDEMA [None]
  - CEREBRAL ISCHAEMIA [None]
  - FALL [None]
  - LOSS OF CONSCIOUSNESS [None]
  - RESPIRATORY FAILURE [None]
